FAERS Safety Report 7233309-7 (Version None)
Quarter: 2011Q1

REPORT INFORMATION
  Report Type: 
  Country: None (occurrence: None)
  Receive Date: 20110119
  Receipt Date: 20110106
  Transmission Date: 20110831
  Serious: Yes (Other)
  Sender: FDA-Public Use
  Company Number: US-ROCHE-731129

PATIENT
  Sex: Male
  Weight: 83.9 kg

DRUGS (3)
  1. ACCUTANE [Suspect]
     Indication: ACNE
     Route: 065
     Dates: start: 19840901, end: 19850901
  2. ACCUTANE [Suspect]
     Route: 065
     Dates: start: 19890101, end: 19900101
  3. ASPIRIN [Concomitant]

REACTIONS (6)
  - INFLAMMATORY BOWEL DISEASE [None]
  - COLITIS ULCERATIVE [None]
  - GASTROINTESTINAL INJURY [None]
  - IRRITABLE BOWEL SYNDROME [None]
  - CROHN'S DISEASE [None]
  - STRESS [None]
